FAERS Safety Report 7596183 (Version 3)
Quarter: 2012Q4

REPORT INFORMATION
  Report Type: 
  Country: US (occurrence: US)
  Receive Date: 20100920
  Receipt Date: 20121108
  Transmission Date: 20130627
  Serious: No
  Sender: FDA-Public Use
  Company Number: US-ASTRAZENECA-2010SE19561

PATIENT
  Age: 49 Year
  Sex: Female
  Weight: 127 kg

DRUGS (22)
  1. SEROQUEL [Suspect]
     Indication: BIPOLAR DISORDER
     Dosage: TOTAL DAILY DOSE 800 MG, DOSE FREQUENCY BID
     Route: 048
     Dates: start: 2008, end: 20100422
  2. SEROQUEL [Suspect]
     Indication: DEPRESSION
     Dosage: TOTAL DAILY DOSE 800 MG, DOSE FREQUENCY BID
     Route: 048
     Dates: start: 2008, end: 20100422
  3. SEROQUEL [Suspect]
     Indication: BIPOLAR DISORDER
     Dosage: 200 MG IN MORNING AND 600 MG AT NIGHT
     Route: 048
     Dates: start: 2008
  4. SEROQUEL [Suspect]
     Indication: DEPRESSION
     Dosage: 200 MG IN MORNING AND 600 MG AT NIGHT
     Route: 048
     Dates: start: 2008
  5. SEROQUEL [Suspect]
     Indication: BIPOLAR DISORDER
     Route: 048
  6. SEROQUEL [Suspect]
     Indication: DEPRESSION
     Route: 048
  7. SEROQUEL [Suspect]
     Indication: BIPOLAR DISORDER
     Route: 048
  8. SEROQUEL [Suspect]
     Indication: DEPRESSION
     Route: 048
  9. SEROQUEL [Suspect]
     Indication: BIPOLAR DISORDER
     Route: 048
  10. SEROQUEL [Suspect]
     Indication: DEPRESSION
     Route: 048
  11. RESTORIL [Concomitant]
  12. PROZAC [Concomitant]
  13. GENUVIA [Concomitant]
  14. BENTYL [Concomitant]
  15. REGLAN [Concomitant]
  16. SYNTHROID [Concomitant]
  17. NEXIUM [Concomitant]
  18. ZOCOR [Concomitant]
  19. COZAAR [Concomitant]
  20. VALIUM [Concomitant]
  21. PLACQUINAL [Concomitant]
  22. LYRICA [Concomitant]

REACTIONS (7)
  - Somatic delusion [Unknown]
  - Malaise [Unknown]
  - Anxiety [Not Recovered/Not Resolved]
  - Agitation [Not Recovered/Not Resolved]
  - Gastric disorder [Unknown]
  - Insomnia [Not Recovered/Not Resolved]
  - Drug dose omission [Unknown]
